FAERS Safety Report 19920633 (Version 1)
Quarter: 2021Q4

REPORT INFORMATION
  Report Type: Spontaneous
  Country: TW (occurrence: TW)
  Receive Date: 20211006
  Receipt Date: 20211006
  Transmission Date: 20220303
  Serious: Yes (Other)
  Sender: FDA-Public Use
  Company Number: TW-009507513-2109TWN006949

PATIENT

DRUGS (1)
  1. ELBASVIR\GRAZOPREVIR [Suspect]
     Active Substance: ELBASVIR\GRAZOPREVIR
     Indication: Hepatitis C
     Dosage: 100 MG/50 MG, QD
     Route: 048

REACTIONS (1)
  - Drug-induced liver injury [Recovered/Resolved]
